FAERS Safety Report 4730541-9 (Version None)
Quarter: 2005Q3

REPORT INFORMATION
  Report Type: 
  Country: None (occurrence: None)
  Receive Date: 20050801
  Receipt Date: 20050726
  Transmission Date: 20060218
  Serious: Yes (Hospitalization)
  Sender: FDA-Public Use
  Company Number: US-ABBOTT-05P-163-0306643-00

PATIENT
  Sex: Female

DRUGS (8)
  1. HUMIRA [Suspect]
     Indication: RHEUMATOID ARTHRITIS
     Route: 058
     Dates: start: 20050711
  2. OXYCOCET [Concomitant]
     Indication: PAIN
     Route: 048
  3. LEVOTHYROXINE SODIUM [Concomitant]
     Indication: HYPOTHYROIDISM
     Route: 048
  4. LORAZEPAM [Concomitant]
     Indication: DRUG USE FOR UNKNOWN INDICATION
     Route: 048
  5. HYDROMORPHONE HYDROCHLORIDE [Concomitant]
     Indication: PAIN
     Route: 048
  6. HYDROCHLOROTHIAZIDE [Concomitant]
     Indication: DRUG USE FOR UNKNOWN INDICATION
     Route: 048
  7. ALBUTEROL SULFATE HFA [Concomitant]
     Indication: DRUG USE FOR UNKNOWN INDICATION
  8. BLOOD PRESSURE PILL [Concomitant]
     Indication: BLOOD PRESSURE
     Route: 048

REACTIONS (1)
  - CARDIAC DISORDER [None]
